FAERS Safety Report 19753071 (Version 4)
Quarter: 2021Q3

REPORT INFORMATION
  Report Type: Other
  Country: JP (occurrence: JP)
  Receive Date: 20210826
  Receipt Date: 20210929
  Transmission Date: 20211014
  Serious: Yes (Hospitalization, Other)
  Sender: FDA-Public Use
  Company Number: JP-ROCHE-2897390

PATIENT
  Age: 73 Year
  Sex: Male
  Weight: 73.6 kg

DRUGS (5)
  1. BEVACIZUMAB. [Suspect]
     Active Substance: BEVACIZUMAB
     Indication: LUNG ADENOCARCINOMA
     Route: 041
     Dates: start: 20210806, end: 20210806
  2. PACLITAXEL. [Concomitant]
     Active Substance: PACLITAXEL
     Indication: LUNG ADENOCARCINOMA
     Dosage: 328 MILLIGRAM
     Route: 041
     Dates: start: 20210806
  3. CARBOPLATIN. [Concomitant]
     Active Substance: CARBOPLATIN
     Indication: LUNG ADENOCARCINOMA
     Dosage: 595 MILLIGRAM
     Route: 041
     Dates: start: 20210806
  4. ATEZOLIZUMAB. [Suspect]
     Active Substance: ATEZOLIZUMAB
     Indication: LUNG ADENOCARCINOMA
     Route: 041
     Dates: start: 20210806, end: 20210827
  5. BEVACIZUMAB. [Suspect]
     Active Substance: BEVACIZUMAB
     Route: 041
     Dates: start: 20210827, end: 20210827

REACTIONS (11)
  - Oral candidiasis [Unknown]
  - Rash [Recovered/Resolved]
  - Decreased appetite [Unknown]
  - Decreased appetite [Recovering/Resolving]
  - Febrile neutropenia [Recovered/Resolved]
  - White blood cell count decreased [Recovered/Resolved]
  - Tongue discomfort [Unknown]
  - Malaise [Recovered/Resolved]
  - Taste disorder [Unknown]
  - Weight decreased [Unknown]
  - Stomatitis [Unknown]

NARRATIVE: CASE EVENT DATE: 20210809
